FAERS Safety Report 24976382 (Version 1)
Quarter: 2025Q1

REPORT INFORMATION
  Report Type: Spontaneous
  Country: CA (occurrence: None)
  Receive Date: 20250217
  Receipt Date: 20250217
  Transmission Date: 20250408
  Serious: Yes (Disabling)
  Sender: ORION
  Company Number: CA-PFIZER INC-202500033568

PATIENT
  Age: 65 Year
  Sex: Female

DRUGS (3)
  1. METHOTREXATE [Suspect]
     Active Substance: METHOTREXATE
     Indication: Rheumatoid arthritis
  2. XELJANZ [Suspect]
     Active Substance: TOFACITINIB CITRATE
     Indication: Rheumatoid arthritis
  3. CELEBREX [Suspect]
     Active Substance: CELECOXIB
     Indication: Product used for unknown indication

REACTIONS (3)
  - Back pain [Recovering/Resolving]
  - Disability assessment scale score increased [Recovering/Resolving]
  - Nerve compression [Recovering/Resolving]
